FAERS Safety Report 14261951 (Version 1)
Quarter: 2017Q4

REPORT INFORMATION
  Report Type: Report from Study
  Country: None (occurrence: BR)
  Receive Date: 20171208
  Receipt Date: 20171208
  Transmission Date: 20180321
  Serious: Yes (Hospitalization, Other)
  Sender: FDA-Public Use
  Company Number: BR-ABBVIE-17K-020-2185403-00

PATIENT
  Age: 58 Year
  Sex: Male

DRUGS (1)
  1. HUMIRA [Suspect]
     Active Substance: ADALIMUMAB
     Indication: CROHN^S DISEASE
     Route: 058
     Dates: start: 20120921

REACTIONS (9)
  - Contusion [Recovering/Resolving]
  - Purpura [Recovering/Resolving]
  - Swelling [Recovering/Resolving]
  - Wrist fracture [Recovering/Resolving]
  - Arthralgia [Recovering/Resolving]
  - Joint swelling [Unknown]
  - Anxiety [Recovering/Resolving]
  - Fall [Unknown]
  - Peripheral swelling [Recovering/Resolving]

NARRATIVE: CASE EVENT DATE: 2017
